FAERS Safety Report 18777290 (Version 1)
Quarter: 2021Q1

REPORT INFORMATION
  Report Type: Spontaneous
  Country: CA (occurrence: CA)
  Receive Date: 20210122
  Receipt Date: 20210122
  Transmission Date: 20210419
  Serious: Yes (Death, Other)
  Sender: FDA-Public Use
  Company Number: CA-PURDUE-USA-2020-0196901

PATIENT
  Age: 42 Year
  Sex: Male

DRUGS (18)
  1. OXYCODONE HYDROCHLORIDE. [Suspect]
     Active Substance: OXYCODONE HYDROCHLORIDE
     Indication: ABDOMINAL PAIN
  2. MORPHINE SULFATE. [Suspect]
     Active Substance: MORPHINE SULFATE
     Indication: PANCREATIC FAILURE
  3. OXYCOCET [Suspect]
     Active Substance: ACETAMINOPHEN\OXYCODONE HYDROCHLORIDE
     Indication: PANCREATIC FAILURE
  4. SUPEUDOL [Suspect]
     Active Substance: OXYCODONE HYDROCHLORIDE
     Indication: PANCREATIC FAILURE
     Dosage: UNK
     Route: 065
  5. OXYFAST [Suspect]
     Active Substance: OXYCODONE
     Indication: PANCREATIC FAILURE
     Dosage: UNK
     Route: 065
  6. OXYFAST [Suspect]
     Active Substance: OXYCODONE
     Indication: ABDOMINAL PAIN
  7. OXYCONTIN [Suspect]
     Active Substance: OXYCODONE HYDROCHLORIDE
     Indication: ABDOMINAL PAIN
     Dosage: UNK
     Route: 048
  8. OXYCODONE HYDROCHLORIDE. [Suspect]
     Active Substance: OXYCODONE HYDROCHLORIDE
     Indication: ABDOMINAL PAIN
     Dosage: UNK
     Route: 048
  9. OXYCODONE HYDROCHLORIDE. [Suspect]
     Active Substance: OXYCODONE HYDROCHLORIDE
     Indication: PANCREATIC FAILURE
     Dosage: UNK
     Route: 048
  10. SUPEUDOL [Suspect]
     Active Substance: OXYCODONE HYDROCHLORIDE
     Indication: ABDOMINAL PAIN
  11. OXYCODONE HYDROCHLORIDE. [Suspect]
     Active Substance: OXYCODONE HYDROCHLORIDE
     Indication: PANCREATIC FAILURE
  12. MORPHINE SULFATE. [Suspect]
     Active Substance: MORPHINE SULFATE
     Indication: ABDOMINAL PAIN
     Dosage: UNK
     Route: 048
  13. OXYCODONE/ ACETAMINOPHEN TABLETS [Suspect]
     Active Substance: ACETAMINOPHEN\OXYCODONE HYDROCHLORIDE
     Indication: PANCREATIC FAILURE
     Dosage: UNK
     Route: 048
  14. OXYCODONE/ ACETAMINOPHEN TABLETS [Suspect]
     Active Substance: ACETAMINOPHEN\OXYCODONE HYDROCHLORIDE
     Indication: ABDOMINAL PAIN
  15. OXY IR [Suspect]
     Active Substance: OXYCODONE HYDROCHLORIDE
     Indication: ABDOMINAL PAIN
     Dosage: UNK
     Route: 048
  16. OXYCOCET [Suspect]
     Active Substance: ACETAMINOPHEN\OXYCODONE HYDROCHLORIDE
     Indication: ABDOMINAL PAIN
     Dosage: UNK
     Route: 065
  17. OXYCONTIN [Suspect]
     Active Substance: OXYCODONE HYDROCHLORIDE
     Indication: PANCREATIC FAILURE
  18. OXY IR [Suspect]
     Active Substance: OXYCODONE HYDROCHLORIDE
     Indication: PANCREATIC FAILURE

REACTIONS (17)
  - Drug dependence [Unknown]
  - Disturbance in attention [Unknown]
  - Dizziness [Unknown]
  - Hyperhidrosis [Unknown]
  - Anxiety [Unknown]
  - Tremor [Unknown]
  - Heart rate irregular [Unknown]
  - Anger [Unknown]
  - Liver injury [Unknown]
  - Nausea [Unknown]
  - Somnolence [Unknown]
  - Constipation [Unknown]
  - Amnesia [Unknown]
  - Death [Fatal]
  - Withdrawal syndrome [Unknown]
  - Pruritus [Unknown]
  - Mood swings [Unknown]

NARRATIVE: CASE EVENT DATE: 20160307
